FAERS Safety Report 8013644-5 (Version None)
Quarter: 2011Q4

REPORT INFORMATION
  Report Type: 
  Country: None (occurrence: None)
  Receive Date: 20111229
  Receipt Date: 20111227
  Transmission Date: 20120403
  Serious: Yes (Disabling)
  Sender: FDA-Public Use
  Company Number: US-PFIZER INC-2011314205

PATIENT
  Sex: Female
  Weight: 65.76 kg

DRUGS (3)
  1. ADDERALL 5 [Concomitant]
     Indication: ATTENTION DEFICIT/HYPERACTIVITY DISORDER
     Dosage: UNK
  2. EFFEXOR XR [Suspect]
     Indication: DEPRESSION
  3. EFFEXOR XR [Suspect]
     Indication: ANXIETY
     Dosage: 75 MG, 1X/DAY
     Route: 048
     Dates: start: 20100101

REACTIONS (5)
  - FATIGUE [None]
  - SOMNOLENCE [None]
  - FEELING ABNORMAL [None]
  - MALAISE [None]
  - IMPAIRED WORK ABILITY [None]
